FAERS Safety Report 5978739-6 (Version None)
Quarter: 2008Q4

REPORT INFORMATION
  Report Type: 
  Country: None (occurrence: None)
  Receive Date: 20081204
  Receipt Date: 20081202
  Transmission Date: 20090506
  Serious: Yes (Hospitalization)
  Sender: FDA-Public Use
  Company Number: DE-BRISTOL-MYERS SQUIBB COMPANY-14365696

PATIENT
  Age: 45 Year
  Sex: Female
  Weight: 104 kg

DRUGS (3)
  1. PACLITAXEL [Suspect]
     Indication: OVARIAN CANCER
     Dosage: INITIALLY STARTED ON 23-APR-2008 (378 MG)
     Route: 065
     Dates: start: 20080807, end: 20080807
  2. CARBOPLATIN [Suspect]
     Indication: OVARIAN CANCER
     Dosage: INITIAL DOSE WAS STARTED ON 23-APR-2008.
     Route: 065
     Dates: start: 20080807, end: 20080807
  3. BLINDED: ENZASTAURIN [Suspect]
     Indication: OVARIAN CANCER
     Dosage: INITIAL DOSE WAS STARTED ON 22-APR-2008. 1125 MG LOADING DOSE.
     Route: 065
     Dates: start: 20080925, end: 20080925

REACTIONS (2)
  - DEEP VEIN THROMBOSIS [None]
  - PELVIC VENOUS THROMBOSIS [None]
